FAERS Safety Report 7232369-7 (Version None)
Quarter: 2011Q1

REPORT INFORMATION
  Report Type: 
  Country: None (occurrence: None)
  Receive Date: 20110119
  Receipt Date: 20110112
  Transmission Date: 20110831
  Serious: Yes (Hospitalization)
  Sender: FDA-Public Use
  Company Number: LB-JNJFOC-20110102822

PATIENT
  Age: 77 Year
  Sex: Female

DRUGS (6)
  1. SOLU-MEDROL [Concomitant]
     Route: 065
  2. SINTROM [Concomitant]
     Route: 065
  3. TAVANIC [Suspect]
     Route: 048
  4. MUCOSOLVAN [Concomitant]
     Route: 065
  5. TAVANIC [Suspect]
     Indication: BRONCHITIS
     Route: 042
  6. IPRATROPIUM/SALBUTAMOL [Concomitant]
     Route: 065

REACTIONS (3)
  - PLATELET COUNT DECREASED [None]
  - HAEMOGLOBIN DECREASED [None]
  - LEUKOPENIA [None]
